FAERS Safety Report 8905174 (Version 1)
Quarter: 2012Q4

REPORT INFORMATION
  Report Type: 
  Country: US (occurrence: US)
  Receive Date: 20121109
  Receipt Date: 20121109
  Transmission Date: 20130627
  Serious: Yes (Other)
  Sender: FDA-Public Use
  Company Number: US-PFIZER INC-2012277606

PATIENT
  Age: 66 Year
  Sex: Female
  Weight: 51.7 kg

DRUGS (3)
  1. XALATAN [Suspect]
     Indication: GLAUCOMA
     Dosage: UNK, 2X/day
     Route: 047
  2. COMBIGAN [Suspect]
     Indication: GLAUCOMA
     Dosage: UNK, 2X/day
     Route: 047
  3. LISINOPRIL W/HYDROCHLOROTHIAZIDE [Concomitant]
     Indication: BLOOD PRESSURE HIGH
     Dosage: 20/12.5 mg, 2X/day

REACTIONS (2)
  - Intraocular pressure increased [Recovered/Resolved]
  - Blood calcium increased [Unknown]
